FAERS Safety Report 7138653-X (Version None)
Quarter: 2010Q4

REPORT INFORMATION
  Report Type: 
  Country: None (occurrence: None)
  Receive Date: 20101201
  Receipt Date: 20101201
  Transmission Date: 20110411
  Serious: Yes (Other)
  Sender: FDA-Public Use
  Company Number: None

PATIENT
  Age: 66 Year
  Sex: Female
  Weight: 56.6996 kg

DRUGS (6)
  1. LOVENOX [Suspect]
     Indication: SURGERY
     Dates: start: 20080502, end: 20080506
  2. CORTISONE ACETATE [Concomitant]
  3. FLUDROCORTISONE ACETATE [Concomitant]
  4. LIPITOR [Concomitant]
  5. LISINOPRIL [Concomitant]
  6. ALENDRONATE [Concomitant]

REACTIONS (1)
  - SWELLING FACE [None]
